FAERS Safety Report 20685439 (Version 1)
Quarter: 2022Q2

REPORT INFORMATION
  Report Type: Other
  Country: FR (occurrence: FR)
  Receive Date: 20220407
  Receipt Date: 20220407
  Transmission Date: 20220721
  Serious: Yes (Hospitalization)
  Sender: FDA-Public Use
  Company Number: None

PATIENT

DRUGS (1)
  1. RUXOLITINIB [Suspect]
     Active Substance: RUXOLITINIB
     Indication: Myeloproliferative neoplasm
     Dosage: 2 DOSAGE FORM, QD (10MG 2X/JOUR)
     Route: 048
     Dates: start: 20150301, end: 202009

REACTIONS (2)
  - Condition aggravated [Not Recovered/Not Resolved]
  - Skin squamous cell carcinoma recurrent [Not Recovered/Not Resolved]

NARRATIVE: CASE EVENT DATE: 20180101
